FAERS Safety Report 16896322 (Version 1)
Quarter: 2019Q4

REPORT INFORMATION
  Report Type: Spontaneous
  Country: CN (occurrence: CN)
  Receive Date: 20191008
  Receipt Date: 20191008
  Transmission Date: 20200122
  Serious: Yes (Other)
  Sender: FDA-Public Use
  Company Number: CN-B.I. PHARMACEUTICALS,INC./RIDGEFIELD-2019-BI-105310

PATIENT
  Age: 45 Year
  Sex: Male

DRUGS (5)
  1. CISPLATIN;PEMETREXED [Concomitant]
     Indication: LUNG ADENOCARCINOMA STAGE IV
     Route: 065
     Dates: start: 20170718
  2. CETUXIMAB. [Suspect]
     Active Substance: CETUXIMAB
     Dosage: 250 MG/M2
     Route: 065
     Dates: start: 20180809, end: 20190430
  3. CETUXIMAB. [Suspect]
     Active Substance: CETUXIMAB
     Indication: NON-SMALL CELL LUNG CANCER
     Dosage: 500 MG/M2, EVERY 2 WEEKS
     Route: 065
     Dates: start: 20180517
  4. GILOTRIF [Suspect]
     Active Substance: AFATINIB
     Indication: NON-SMALL CELL LUNG CANCER
     Route: 065
     Dates: start: 20180517
  5. GILOTRIF [Suspect]
     Active Substance: AFATINIB
     Route: 065
     Dates: end: 20190430

REACTIONS (3)
  - Rash [Unknown]
  - Pulmonary hilar enlargement [Unknown]
  - Diarrhoea [Unknown]

NARRATIVE: CASE EVENT DATE: 20190430
